FAERS Safety Report 6661913-3 (Version None)
Quarter: 2010Q1

REPORT INFORMATION
  Report Type: 
  Country: None (occurrence: None)
  Receive Date: 20100331
  Receipt Date: 20091002
  Transmission Date: 20100710
  Serious: Yes (Other)
  Sender: FDA-Public Use
  Company Number: US-BRISTOL-MYERS SQUIBB COMPANY-14804884

PATIENT
  Sex: Male

DRUGS (3)
  1. ERBITUX [Suspect]
     Indication: HEAD AND NECK CANCER
     Dosage: 1 DF =100CC
     Route: 042
  2. CARBOPLATIN [Concomitant]
     Indication: HEAD AND NECK CANCER
     Route: 042
  3. PACLITAXEL [Concomitant]
     Indication: HEAD AND NECK CANCER
     Route: 042

REACTIONS (3)
  - BLOOD PRESSURE DECREASED [None]
  - DYSPNOEA [None]
  - ERYTHEMA [None]
